FAERS Safety Report 18598184 (Version 2)
Quarter: 2025Q1

REPORT INFORMATION
  Report Type: Spontaneous
  Country: DE (occurrence: DE)
  Receive Date: 20201210
  Receipt Date: 20250217
  Transmission Date: 20250409
  Serious: Yes (Other)
  Sender: AMGEN
  Company Number: DE-002147023-NVSC2020DE179552

PATIENT
  Age: 51 Year
  Sex: Female

DRUGS (7)
  1. AIMOVIG [Suspect]
     Active Substance: ERENUMAB-AOOE
     Indication: Migraine
     Dosage: 70 MG, Q4W
     Route: 058
     Dates: start: 201811, end: 20190502
  2. BETAMETHADOC [Concomitant]
     Indication: Skin lesion
     Route: 065
  3. GENTAMICIN [Concomitant]
     Active Substance: GENTAMICIN
     Indication: Skin lesion
     Dosage: UNK (TWICE DAILY WAS INITIATED)
     Route: 065
  4. BETAMETHASONE [Concomitant]
     Active Substance: BETAMETHASONE
     Indication: Skin lesion
     Route: 065
  5. TRIAMCINOLONE [Concomitant]
     Active Substance: TRIAMCINOLONE
     Indication: Skin lesion
     Route: 065
  6. CLIOQUINOL [Concomitant]
     Active Substance: CLIOQUINOL
     Indication: Skin lesion
     Route: 065
  7. OPIPRAMOL [Concomitant]
     Active Substance: OPIPRAMOL
     Indication: Sleep disorder
     Route: 065
     Dates: start: 2017

REACTIONS (2)
  - Necrosis [Recovering/Resolving]
  - Impaired healing [Recovered/Resolved]

NARRATIVE: CASE EVENT DATE: 20190417
